FAERS Safety Report 7749566-4 (Version None)
Quarter: 2011Q3

REPORT INFORMATION
  Report Type: 
  Country: None (occurrence: None)
  Receive Date: 20110914
  Receipt Date: 20110909
  Transmission Date: 20111222
  Serious: Yes (Death)
  Sender: FDA-Public Use
  Company Number: AU-GENZYME-THYM-1001254

PATIENT
  Sex: Male
  Weight: 105 kg

DRUGS (2)
  1. THYMOGLOBULIN [Suspect]
     Dosage: 5 MG/KG, QD
     Route: 042
     Dates: start: 20090804, end: 20090804
  2. THYMOGLOBULIN [Suspect]
     Indication: STEM CELL TRANSPLANT
     Dosage: 2 MG/KG, QD
     Route: 042
     Dates: start: 20090802, end: 20090803

REACTIONS (1)
  - ACUTE LYMPHOCYTIC LEUKAEMIA RECURRENT [None]
